FAERS Safety Report 7921795-6 (Version None)
Quarter: 2011Q4

REPORT INFORMATION
  Report Type: 
  Country: None (occurrence: None)
  Receive Date: 20111117
  Receipt Date: 20111114
  Transmission Date: 20120403
  Serious: Yes (Death)
  Sender: FDA-Public Use
  Company Number: DE-GLAXOSMITHKLINE-D0073048A

PATIENT
  Sex: Male

DRUGS (5)
  1. ESLICARBAZEPINE ACETATE [Concomitant]
     Indication: EPILEPSY
     Dosage: 1200MG PER DAY
     Route: 065
  2. LAMICTAL [Concomitant]
     Indication: EPILEPSY
     Dosage: 200MG PER DAY
     Route: 048
  3. VALPROATE SODIUM [Concomitant]
     Indication: EPILEPSY
     Dosage: 2100MG PER DAY
     Route: 048
  4. VAGAL NERVE STIMULATOR [Concomitant]
     Indication: EPILEPSY
     Route: 065
  5. TROBALT [Suspect]
     Indication: PARTIAL SEIZURES
     Dosage: 50MG THREE TIMES PER DAY
     Route: 048
     Dates: start: 20110707, end: 20110701

REACTIONS (1)
  - SUDDEN UNEXPLAINED DEATH IN EPILEPSY [None]
